FAERS Safety Report 9753306 (Version 1)
Quarter: 2013Q4

REPORT INFORMATION
  Report Type: Spontaneous
  Country: US (occurrence: US)
  Receive Date: 20131213
  Receipt Date: 20131213
  Transmission Date: 20140711
  Serious: No
  Sender: FDA-Public Use
  Company Number: US-TEVA-402893USA

PATIENT
  Age: 26 Year
  Sex: Female
  Weight: 55.84 kg

DRUGS (5)
  1. PARAGARD 380A [Suspect]
     Indication: CONTRACEPTION
     Route: 015
     Dates: start: 20120426, end: 20130429
  2. ZOLOFT [Concomitant]
     Indication: DEPRESSION
  3. BUSPAR [Concomitant]
     Indication: ANXIETY
  4. NEURONTIN [Concomitant]
  5. AMBIEN [Concomitant]

REACTIONS (1)
  - Device expulsion [Recovered/Resolved]
